FAERS Safety Report 9995518 (Version 1)
Quarter: 2014Q1

REPORT INFORMATION
  Report Type: Spontaneous
  Country: US (occurrence: None)
  Receive Date: 20140225
  Receipt Date: 20140225
  Transmission Date: 20141002
  Serious: Yes (Other)
  Sender: FDA-Public Use
  Company Number: 2013-026

PATIENT
  Age: 59 Year
  Sex: Female
  Weight: 76.2 kg

DRUGS (3)
  1. PRIALT [Suspect]
     Indication: POST LAMINECTOMY SYNDROME
     Dates: start: 20121114
  2. PRIALT [Suspect]
     Indication: PAIN
     Dates: start: 20121114
  3. PRIALT [Suspect]
     Indication: RADICULITIS BRACHIAL
     Dates: start: 20121114

REACTIONS (14)
  - Hallucination, auditory [None]
  - Gingival pain [None]
  - Oropharyngeal plaque [None]
  - Oral disorder [None]
  - Skin disorder [None]
  - Toothache [None]
  - Hypoaesthesia oral [None]
  - Amnesia [None]
  - Aphasia [None]
  - Pain [None]
  - Dysgeusia [None]
  - Dry mouth [None]
  - Hypoaesthesia [None]
  - Decreased appetite [None]
